FAERS Safety Report 20155229 (Version 1)
Quarter: 2021Q4

REPORT INFORMATION
  Report Type: Spontaneous
  Country: US (occurrence: US)
  Receive Date: 20211207
  Receipt Date: 20211207
  Transmission Date: 20220303
  Serious: Yes (Hospitalization)
  Sender: FDA-Public Use
  Company Number: US-MYLANLABS-2021M1090190

PATIENT
  Age: 48 Year
  Sex: Female

DRUGS (12)
  1. FLUOXETINE [Suspect]
     Active Substance: FLUOXETINE HYDROCHLORIDE
     Indication: Depression
     Dosage: UNK
     Route: 065
  2. CLINDAMYCIN [Suspect]
     Active Substance: CLINDAMYCIN
     Indication: Osteomyelitis
     Dosage: UNK
     Route: 048
     Dates: start: 2019
  3. CIPROFLOXACIN [Suspect]
     Active Substance: CIPROFLOXACIN
     Indication: Osteomyelitis
     Dosage: FOR 7 DAYS
     Route: 048
     Dates: start: 2019
  4. VANCOMYCIN [Suspect]
     Active Substance: VANCOMYCIN
     Indication: Osteomyelitis
     Dosage: UNK
     Route: 042
     Dates: start: 2019
  5. CEFTRIAXONE [Suspect]
     Active Substance: CEFTRIAXONE
     Indication: Osteomyelitis
     Dosage: UNK
     Route: 042
     Dates: start: 2019
  6. METRONIDAZOLE [Suspect]
     Active Substance: METRONIDAZOLE
     Indication: Osteomyelitis
     Dosage: FOR 7 DAYS
     Route: 048
     Dates: start: 2019
  7. METRONIDAZOLE [Suspect]
     Active Substance: METRONIDAZOLE
     Indication: Osteomyelitis
     Dosage: UNK
     Route: 042
  8. BUSPIRONE [Concomitant]
     Active Substance: BUSPIRONE HYDROCHLORIDE
     Indication: Depression
     Dosage: UNK
     Route: 065
  9. OXYCODONE [Concomitant]
     Active Substance: OXYCODONE
     Indication: Pain management
     Dosage: UNK
     Route: 065
  10. FLUCONAZOLE [Concomitant]
     Active Substance: FLUCONAZOLE
     Indication: Lactobacillus infection
     Dosage: UNK
     Route: 065
  11. FLUCONAZOLE [Concomitant]
     Active Substance: FLUCONAZOLE
     Indication: Candida infection
  12. PENICILLIN G [Concomitant]
     Active Substance: PENICILLIN G
     Indication: Prophylaxis
     Dosage: UNK
     Route: 042

REACTIONS (4)
  - Dental restoration failure [Recovering/Resolving]
  - Osteomyelitis [Recovering/Resolving]
  - Abscess [Recovering/Resolving]
  - Drug ineffective [Unknown]

NARRATIVE: CASE EVENT DATE: 20190101
